FAERS Safety Report 4759084-3 (Version None)
Quarter: 2005Q3

REPORT INFORMATION
  Report Type: 
  Country: None (occurrence: None)
  Receive Date: 20050826
  Receipt Date: 20050811
  Transmission Date: 20060218
  Serious: Yes (Hospitalization)
  Sender: FDA-Public Use
  Company Number: 2005BI015158

PATIENT
  Age: 52 Year
  Sex: Male
  Weight: 106.5953 kg

DRUGS (7)
  1. AVONEX [Suspect]
     Indication: MULTIPLE SCLEROSIS
     Dosage: 30 UG;QW; IM
     Route: 030
     Dates: start: 20050201, end: 20050401
  2. AVONEX [Suspect]
     Indication: MULTIPLE SCLEROSIS
     Dosage: 30 UG; QW; IM
     Route: 030
     Dates: start: 20050401
  3. WELLBUTRIN [Concomitant]
  4. EFFEXOR [Concomitant]
  5. LISINOPRIL [Concomitant]
  6. CLONIPINE [Concomitant]
  7. PROVIGIL [Concomitant]

REACTIONS (5)
  - BLADDER PAIN [None]
  - BLADDER SPASM [None]
  - CONDITION AGGRAVATED [None]
  - NEUROGENIC BLADDER [None]
  - URINARY TRACT INFECTION [None]
